FAERS Safety Report 24298115 (Version 2)
Quarter: 2024Q3

REPORT INFORMATION
  Report Type: Spontaneous
  Country: US (occurrence: US)
  Receive Date: 20240909
  Receipt Date: 20240923
  Transmission Date: 20241016
  Serious: No
  Sender: ROCHE
  Company Number: US-ROCHE-10000072148

PATIENT
  Age: 56 Year
  Sex: Female
  Weight: 81.65 kg

DRUGS (19)
  1. VABYSMO [Suspect]
     Active Substance: FARICIMAB\FARICIMAB-SVOA
     Indication: Neovascular age-related macular degeneration
     Dosage: TREATMENT IN RIGHT EYE
     Route: 050
  2. VABYSMO [Suspect]
     Active Substance: FARICIMAB\FARICIMAB-SVOA
     Indication: Neovascular age-related macular degeneration
     Dosage: DOSAGE: 6MG/0.05ML); GIVEN IN RIGHT EYE
     Route: 050
     Dates: start: 20240611
  3. VABYSMO [Suspect]
     Active Substance: FARICIMAB\FARICIMAB-SVOA
     Indication: Choroidal neovascularisation
     Dosage: DOSAGE: 6MG/0.05ML); GIVEN IN RIGHT EYE
     Route: 050
     Dates: start: 202305, end: 20230822
  4. AVASTIN [Suspect]
     Active Substance: BEVACIZUMAB
     Indication: Neovascular age-related macular degeneration
     Route: 065
     Dates: end: 20210413
  5. AVASTIN [Suspect]
     Active Substance: BEVACIZUMAB
     Dosage: DOSAGE: 1.25MG/0.05ML; GIVEN IN RIGHT EYE
     Route: 050
     Dates: start: 200911, end: 201002
  6. MECLIZINE [Concomitant]
     Active Substance: MECLIZINE HYDROCHLORIDE
     Indication: Dizziness
     Dosage: TWO X 25 MG (50 MG TOTAL) AS NEEDED
     Route: 048
     Dates: start: 20240830
  7. JARDIANCE [Concomitant]
     Active Substance: EMPAGLIFLOZIN
     Indication: Diabetes mellitus
     Route: 048
  8. METFORMIN [Concomitant]
     Active Substance: METFORMIN HYDROCHLORIDE
     Indication: Diabetes mellitus
     Dosage: TAKES 2 X 500 MG (1000MG PER DOSE) TWICE A DAY (2000 MG TOTAL PER DAY)
     Route: 048
  9. LISINOPRIL [Concomitant]
     Active Substance: LISINOPRIL
     Indication: Hypertension
     Route: 048
  10. LISINOPRIL [Concomitant]
     Active Substance: LISINOPRIL
     Route: 048
  11. METOPROLOL [Concomitant]
     Active Substance: METOPROLOL
     Indication: Heart rate increased
     Dosage: TAKES TWICE A DAY. PATIENT ^THINKS^ DOSE IS 15 MG, BUT IS NOT SURE
     Route: 048
  12. METOPROLOL [Concomitant]
     Active Substance: METOPROLOL
     Dosage: TAKES TWICE A DAY. PATIENT ^THINKS^ DOSE IS 15 MG, BUT IS NOT SURE
     Route: 048
  13. MINERALS\VITAMINS [Concomitant]
     Active Substance: MINERALS\VITAMINS
     Indication: Neovascular age-related macular degeneration
     Dosage: TAKES TWICE A DAY
     Route: 048
  14. EYLEA [Concomitant]
     Active Substance: AFLIBERCEPT
     Indication: Neovascular age-related macular degeneration
     Route: 050
     Dates: start: 20240701
  15. EYLEA [Concomitant]
     Active Substance: AFLIBERCEPT
     Dosage: RECEIVES IN LEFT EYE
     Route: 050
     Dates: start: 202105, end: 20240701
  16. EYLEA [Concomitant]
     Active Substance: AFLIBERCEPT
     Dosage: RECEIVED IN RIGHT EYE
     Route: 050
     Dates: start: 202310, end: 202402
  17. EYLEA [Concomitant]
     Active Substance: AFLIBERCEPT
     Route: 050
     Dates: start: 202105, end: 202305
  18. ROSUVASTATIN [Concomitant]
     Active Substance: ROSUVASTATIN\ROSUVASTATIN CALCIUM
     Route: 048
  19. IPRATROPIUM BROMIDE [Concomitant]
     Active Substance: IPRATROPIUM BROMIDE\IPRATROPIUM BROMIDE ANHYDROUS
     Route: 055

REACTIONS (5)
  - Dizziness [Not Recovered/Not Resolved]
  - Reading disorder [Unknown]
  - Gait disturbance [Unknown]
  - Off label use [Unknown]
  - Drug ineffective [Unknown]

NARRATIVE: CASE EVENT DATE: 20091101
